FAERS Safety Report 14202094 (Version 1)
Quarter: 2017Q4

REPORT INFORMATION
  Report Type: Spontaneous
  Country: AR (occurrence: AR)
  Receive Date: 20171117
  Receipt Date: 20171117
  Transmission Date: 20180321
  Serious: Yes (Death, Other)
  Sender: FDA-Public Use
  Company Number: AR-INCYTE CORPORATION-2017IN009703

PATIENT

DRUGS (1)
  1. JAKAVI [Suspect]
     Active Substance: RUXOLITINIB
     Indication: PRIMARY MYELOFIBROSIS
     Dosage: 15 MG, BID (TWO DAILY)
     Route: 065
     Dates: start: 201602

REACTIONS (2)
  - Urinary tract infection [Fatal]
  - Respiratory tract infection [Fatal]
